FAERS Safety Report 6695429-5 (Version None)
Quarter: 2010Q2

REPORT INFORMATION
  Report Type: 
  Country: None (occurrence: None)
  Receive Date: 20100422
  Receipt Date: 20100422
  Transmission Date: 20101027
  Serious: Yes (Other)
  Sender: FDA-Public Use
  Company Number: None

PATIENT
  Age: 51 Year
  Sex: Female
  Weight: 49.8957 kg

DRUGS (2)
  1. LAMOTRIGINE [Suspect]
     Indication: DEPRESSION
     Dosage: 1/2 PILL TWICE 2 DAYS
     Dates: start: 20100408
  2. LAMOTRIGINE [Suspect]
     Indication: DEPRESSION
     Dosage: 1/2 PILL TWICE 2 DAYS
     Dates: start: 20100409

REACTIONS (5)
  - DISCOMFORT [None]
  - INSOMNIA [None]
  - NERVOUSNESS [None]
  - PAIN [None]
  - PARAESTHESIA [None]
